FAERS Safety Report 25306508 (Version 1)
Quarter: 2025Q2

REPORT INFORMATION
  Report Type: Spontaneous
  Country: FR (occurrence: FR)
  Receive Date: 20250513
  Receipt Date: 20250513
  Transmission Date: 20250716
  Serious: Yes (Hospitalization)
  Sender: IPSEN BIOPHARMACEUTICALS, INC.
  Company Number: None

PATIENT
  Age: 66 Year
  Sex: Female
  Weight: 57 kg

DRUGS (7)
  1. DYSPORT [Suspect]
     Active Substance: ABOBOTULINUMTOXINA
     Indication: Muscle spasticity
     Route: 030
     Dates: start: 20250306, end: 20250306
  2. PONVORY [Concomitant]
     Active Substance: PONESIMOD
  3. DULOXETINE [Concomitant]
     Active Substance: DULOXETINE
  4. ACTONEL [Concomitant]
     Active Substance: RISEDRONATE SODIUM
  5. DALFAMPRIDINE [Concomitant]
     Active Substance: DALFAMPRIDINE
  6. GABAPENTIN [Concomitant]
     Active Substance: GABAPENTIN
  7. FOSFOMYCIN [Concomitant]
     Active Substance: FOSFOMYCIN

REACTIONS (5)
  - Dysphagia [Recovering/Resolving]
  - Muscular weakness [Recovering/Resolving]
  - Eyelid ptosis [Recovered/Resolved]
  - Hypoventilation [Recovered/Resolved]
  - Dysphagia [Recovered/Resolved]

NARRATIVE: CASE EVENT DATE: 20250321
